FAERS Safety Report 25859288 (Version 1)
Quarter: 2025Q3

REPORT INFORMATION
  Report Type: Spontaneous
  Country: JP (occurrence: JP)
  Receive Date: 20250929
  Receipt Date: 20250929
  Transmission Date: 20251021
  Serious: Yes (Hospitalization, Other)
  Sender: PFIZER
  Company Number: JP-PFIZER INC-PV202500114685

PATIENT
  Age: 5 Decade
  Sex: Male

DRUGS (19)
  1. TRIAZOLAM [Interacting]
     Active Substance: TRIAZOLAM
     Route: 048
  2. LITHIUM CARBONATE [Interacting]
     Active Substance: LITHIUM CARBONATE
     Indication: Depressive symptom
     Dosage: 200 MG/DAY
     Route: 048
  3. OLANZAPINE [Interacting]
     Active Substance: OLANZAPINE
     Route: 048
  4. VORTIOXETINE [Interacting]
     Active Substance: VORTIOXETINE
     Route: 048
  5. VORTIOXETINE [Interacting]
     Active Substance: VORTIOXETINE
     Route: 048
  6. BROMAZEPAM [Interacting]
     Active Substance: BROMAZEPAM
     Route: 048
  7. BROMAZEPAM [Interacting]
     Active Substance: BROMAZEPAM
     Route: 048
  8. BROMAZEPAM [Interacting]
     Active Substance: BROMAZEPAM
     Route: 048
  9. IBUPROFEN [Interacting]
     Active Substance: IBUPROFEN
     Route: 048
  10. ZOLPIDEM [Interacting]
     Active Substance: ZOLPIDEM TARTRATE
     Route: 048
  11. ZOLPIDEM [Interacting]
     Active Substance: ZOLPIDEM TARTRATE
     Route: 048
  12. ARIPIPRAZOLE [Interacting]
     Active Substance: ARIPIPRAZOLE
     Route: 048
  13. LAMOTRIGINE [Interacting]
     Active Substance: LAMOTRIGINE
     Route: 048
  14. LAMOTRIGINE [Interacting]
     Active Substance: LAMOTRIGINE
     Route: 048
  15. MIANSERIN [Interacting]
     Active Substance: MIANSERIN
     Route: 048
  16. CLOXAZOLAM [Interacting]
     Active Substance: CLOXAZOLAM
     Route: 048
  17. QUETIAPINE [Interacting]
     Active Substance: QUETIAPINE
     Route: 048
  18. AMITRIPTYLINE [Interacting]
     Active Substance: AMITRIPTYLINE
     Route: 048
  19. BLONANSERIN [Interacting]
     Active Substance: BLONANSERIN
     Route: 048

REACTIONS (6)
  - Overdose [Not Recovered/Not Resolved]
  - Drug interaction [Not Recovered/Not Resolved]
  - Altered state of consciousness [Not Recovered/Not Resolved]
  - Toxicity to various agents [Not Recovered/Not Resolved]
  - Nervous system disorder [Not Recovered/Not Resolved]
  - Eye movement disorder [Not Recovered/Not Resolved]
